FAERS Safety Report 4639651-8 (Version None)
Quarter: 2005Q2

REPORT INFORMATION
  Report Type: 
  Country: None (occurrence: None)
  Receive Date: 20050413
  Receipt Date: 20040205
  Transmission Date: 20051028
  Serious: Yes (Other)
  Sender: FDA-Public Use
  Company Number: 2004-00457

PATIENT
  Age: 38 Year
  Sex: Female

DRUGS (2)
  1. IMOGAM RABIES [Suspect]
     Indication: RABIES
     Dosage: (8.34 ML)
     Dates: start: 20031212
  2. IMOVAX RABIES (RABIES (HDC) VACCINE - F) [Suspect]
     Indication: RABIES
     Dosage: (2.5), I.M.
     Route: 030
     Dates: start: 20031212

REACTIONS (8)
  - BALANCE DISORDER [None]
  - DIZZINESS [None]
  - FATIGUE [None]
  - MALAISE [None]
  - NYSTAGMUS [None]
  - TINNITUS [None]
  - VACCINATION COMPLICATION [None]
  - VERTIGO [None]
